FAERS Safety Report 4530720-X (Version None)
Quarter: 2004Q4

REPORT INFORMATION
  Report Type: 
  Country: None (occurrence: None)
  Receive Date: 20041217
  Receipt Date: 20041129
  Transmission Date: 20050328
  Serious: Yes (Other)
  Sender: FDA-Public Use
  Company Number: NL-GLAXOSMITHKLINE-B0359241A

PATIENT
  Age: 72 Year
  Sex: Female
  Weight: 71 kg

DRUGS (8)
  1. AVANDIA [Suspect]
     Dosage: 4MG PER DAY
     Dates: start: 20040924, end: 20041025
  2. METFORMIN HCL [Concomitant]
  3. OXAZEPAM [Concomitant]
     Route: 048
  4. COZAAR [Concomitant]
     Indication: HYPERTENSION
     Route: 048
  5. SIMVASTATIN [Concomitant]
     Route: 048
  6. METHYLDOPA [Concomitant]
     Indication: HYPERTENSION
     Route: 048
  7. BUMETANIDE [Concomitant]
     Indication: HYPERTENSION
     Route: 048
  8. GLYBURIDE [Concomitant]
     Dosage: 15MG PER DAY
     Route: 048

REACTIONS (2)
  - DIABETES MELLITUS [None]
  - WEIGHT DECREASED [None]
